APPROVED DRUG PRODUCT: HYDROCORTISONE ACETATE
Active Ingredient: HYDROCORTISONE ACETATE
Strength: 50MG/ML
Dosage Form/Route: INJECTABLE;INJECTION
Application: N009637 | Product #002
Applicant: EPIC PHARMA LLC
Approved: Approved Prior to Jan 1, 1982 | RLD: No | RS: No | Type: DISCN